FAERS Safety Report 10313075 (Version 5)
Quarter: 2015Q1

REPORT INFORMATION
  Report Type: Spontaneous
  Country: US (occurrence: US)
  Receive Date: 20140718
  Receipt Date: 20150226
  Transmission Date: 20150720
  Serious: Yes (Death, Hospitalization)
  Sender: FDA-Public Use
  Company Number: US-PFIZER INC-2014199065

PATIENT
  Age: 82 Year
  Sex: Female

DRUGS (8)
  1. TOPROL XL [Concomitant]
     Active Substance: METOPROLOL SUCCINATE
     Dosage: UNK
  2. AMIODARONE HCL [Suspect]
     Active Substance: AMIODARONE HYDROCHLORIDE
     Indication: CARDIAC DISORDER
     Dosage: 200MG-400MG DAILY-(AVERAGE), SOMETIMES OVER 400MG DAILY
     Dates: start: 2006
  3. LOVASTATIN. [Concomitant]
     Active Substance: LOVASTATIN
     Dosage: 40 MG, DAILY
  4. ENALAPRIL [Concomitant]
     Active Substance: ENALAPRIL
     Dosage: 2.5 MG, DAILY
  5. FUROSEMIDE. [Concomitant]
     Active Substance: FUROSEMIDE
     Dosage: 20 MG, DAILY
  6. PLAVIX [Concomitant]
     Active Substance: CLOPIDOGREL BISULFATE
     Dosage: 75 MG, DAILY
  7. AMIODARONE [Suspect]
     Active Substance: AMIODARONE
     Indication: CARDIAC DISORDER
     Dosage: 400 MG, DAILY
     Route: 048
     Dates: start: 20131211, end: 201312
  8. SYNTHROID [Concomitant]
     Active Substance: LEVOTHYROXINE SODIUM
     Dosage: 100 ?G, DAILY

REACTIONS (2)
  - Acute respiratory distress syndrome [Fatal]
  - Pulmonary toxicity [Fatal]

NARRATIVE: CASE EVENT DATE: 201312
